FAERS Safety Report 17069893 (Version 1)
Quarter: 2019Q4

REPORT INFORMATION
  Report Type: Spontaneous
  Country: US (occurrence: US)
  Receive Date: 20191025
  Receipt Date: 20191025
  Transmission Date: 20200122
  Serious: Yes (Hospitalization)
  Sender: FDA-Public Use
  Company Number: None

PATIENT
  Age: 50 Year
  Sex: Male

DRUGS (5)
  1. GABAPENTIN 100MG [Concomitant]
     Active Substance: GABAPENTIN
  2. CELECOXIB 400MG [Concomitant]
  3. ENBREL [Suspect]
     Active Substance: ETANERCEPT
     Indication: RHEUMATOID ARTHRITIS
     Route: 058
     Dates: start: 20181017
  4. MUPIROCIN OIN 2% [Concomitant]
  5. CHLORHEX GLU SOL 0.12% [Concomitant]

REACTIONS (2)
  - Therapy cessation [None]
  - Hip surgery [None]

NARRATIVE: CASE EVENT DATE: 20191018
